FAERS Safety Report 8010429-0 (Version None)
Quarter: 2011Q4

REPORT INFORMATION
  Report Type: 
  Country: None (occurrence: None)
  Receive Date: 20111222
  Receipt Date: 20111206
  Transmission Date: 20120403
  Serious: Yes (Other)
  Sender: FDA-Public Use
  Company Number: CIP11001688

PATIENT
  Sex: Female

DRUGS (7)
  1. ARIMIDEX [Concomitant]
  2. ACTONEL [Suspect]
     Dosage: ORAL
     Route: 048
     Dates: start: 20090831
  3. ALENDRONATE SODIUM [Suspect]
     Indication: OSTEOPOROSIS
  4. ALENDRONATE SODIUM [Suspect]
     Indication: OSTEOPENIA
  5. FOSAMAX [Suspect]
     Indication: OSTEOPOROSIS
     Dosage: 70 MG ONCE WEEKLY
     Dates: start: 20000101
  6. FOSAMAX [Suspect]
     Indication: OSTEOPENIA
     Dosage: 70 MG ONCE WEEKLY
     Dates: start: 20000101
  7. EFFEXOR [Concomitant]

REACTIONS (9)
  - FEMUR FRACTURE [None]
  - PAIN IN EXTREMITY [None]
  - FALL [None]
  - GAIT DISTURBANCE [None]
  - STRESS FRACTURE [None]
  - FRACTURE DELAYED UNION [None]
  - PATHOLOGICAL FRACTURE [None]
  - BONE DISORDER [None]
  - LOW TURNOVER OSTEOPATHY [None]
